FAERS Safety Report 6979013-1 (Version None)
Quarter: 2010Q3

REPORT INFORMATION
  Report Type: 
  Country: None (occurrence: None)
  Receive Date: 20100913
  Receipt Date: 20100901
  Transmission Date: 20110219
  Serious: Yes (Other)
  Sender: FDA-Public Use
  Company Number: GB-BRISTOL-MYERS SQUIBB COMPANY-15279136

PATIENT
  Age: 22 Year
  Sex: Male

DRUGS (2)
  1. METFORMIN HCL [Suspect]
     Indication: DIABETES MELLITUS
     Route: 048
     Dates: start: 20100618, end: 20100803
  2. ACETAMINOPHEN [Concomitant]
     Route: 048

REACTIONS (3)
  - AGGRESSION [None]
  - MOOD SWINGS [None]
  - SELF INJURIOUS BEHAVIOUR [None]
